FAERS Safety Report 22203192 (Version 1)
Quarter: 2023Q2

REPORT INFORMATION
  Report Type: Spontaneous
  Country: US (occurrence: None)
  Receive Date: 20230412
  Receipt Date: 20230412
  Transmission Date: 20230721
  Serious: No
  Sender: FDA-Public Use
  Company Number: None

PATIENT
  Age: 63 Year
  Sex: Male
  Weight: 72.21 kg

DRUGS (11)
  1. CAPECITABINE [Suspect]
     Active Substance: CAPECITABINE
     Indication: Gastric cancer
     Dosage: 300MG TWICE DAILY ORAL
     Route: 048
     Dates: start: 202302, end: 202304
  2. CAPECITABINE [Suspect]
     Active Substance: CAPECITABINE
     Indication: Gastric cancer
     Dosage: 1000MG TWICE DAILY ORAL
     Route: 048
     Dates: start: 202302, end: 202304
  3. PROBIOTIC [Concomitant]
  4. ASPIRIN [Concomitant]
  5. LEUCOVORIN [Concomitant]
  6. METFORMIN [Concomitant]
  7. METOPROLOL [Concomitant]
  8. OXYCODONE [Concomitant]
     Active Substance: OXYCODONE
  9. PALONOSETRON [Concomitant]
     Active Substance: PALONOSETRON
  10. PATANOL [Concomitant]
  11. ROSUVASTATIN [Concomitant]

REACTIONS (1)
  - Unevaluable event [None]
